FAERS Safety Report 18458018 (Version 1)
Quarter: 2020Q4

REPORT INFORMATION
  Report Type: Spontaneous
  Country: GB (occurrence: GB)
  Receive Date: 20201103
  Receipt Date: 20201103
  Transmission Date: 20210114
  Serious: Yes (Other)
  Sender: FDA-Public Use
  Company Number: GB-MYLANLABS-2020M1091117

PATIENT
  Age: 25 Year
  Sex: Female
  Weight: 65 kg

DRUGS (2)
  1. DYMISTA [Suspect]
     Active Substance: AZELASTINE HYDROCHLORIDE\FLUTICASONE PROPIONATE
     Indication: SINUS CONGESTION
     Dosage: 2 DOSAGE FORM, QD
     Route: 045
     Dates: start: 20200610, end: 20200929
  2. AMOXICILLIN. [Concomitant]
     Active Substance: AMOXICILLIN
     Dosage: UNK

REACTIONS (4)
  - Depressed mood [Unknown]
  - Anxiety [Not Recovered/Not Resolved]
  - Tinnitus [Unknown]
  - Restlessness [Unknown]

NARRATIVE: CASE EVENT DATE: 20200710
